FAERS Safety Report 9975354 (Version 1)
Quarter: 2014Q1

REPORT INFORMATION
  Report Type: Report from Study
  Country: US (occurrence: US)
  Receive Date: 20140306
  Receipt Date: 20140306
  Transmission Date: 20141002
  Serious: No
  Sender: FDA-Public Use
  Company Number: US-ABBVIE-13P-163-1158235-00

PATIENT
  Age: 36 Year
  Sex: Female

DRUGS (10)
  1. HUMIRA [Suspect]
     Indication: RHEUMATOID ARTHRITIS
     Dates: start: 20130817
  2. PROTOPIC [Concomitant]
     Indication: PSORIASIS
  3. MONO LINYAH [Concomitant]
     Indication: SKIN FISSURES
  4. KETOCONAZOLE [Concomitant]
     Indication: FUNGAL SKIN INFECTION
     Dosage: MIXED WITH DESONIDE
  5. DESONIDE [Concomitant]
     Indication: FUNGAL SKIN INFECTION
     Dosage: MIXED WITH KETOCONAZOLE
  6. FLUOCINOLONE [Concomitant]
     Indication: PSORIASIS
     Dosage: TWO WEEKS ON THEN TWO WEEKS OFF
     Route: 061
  7. CLOBETASOL [Concomitant]
     Indication: PSORIASIS
     Dosage: EVERY MORNING
  8. ELMIRON [Concomitant]
     Indication: CYSTITIS INTERSTITIAL
     Route: 048
  9. AMITRIPTYLINE [Concomitant]
     Indication: COLITIS
     Route: 048
  10. NAPROXEN SODIUM [Concomitant]
     Indication: ARTHRALGIA
     Dosage: EVERY 6 TO 8 HOURS
     Route: 048

REACTIONS (4)
  - Pruritus [Not Recovered/Not Resolved]
  - Injection site bruising [Not Recovered/Not Resolved]
  - Injection site pain [Not Recovered/Not Resolved]
  - Injection site pain [Not Recovered/Not Resolved]
